FAERS Safety Report 5078703-8 (Version None)
Quarter: 2006Q3

REPORT INFORMATION
  Report Type: 
  Country: None (occurrence: None)
  Receive Date: 20060808
  Receipt Date: 20060802
  Transmission Date: 20061208
  Serious: Yes (Hospitalization)
  Sender: FDA-Public Use
  Company Number: 2006SP002754

PATIENT
  Age: 65 Year
  Sex: Female

DRUGS (10)
  1. XOPENEX HFA [Suspect]
     Indication: ASTHMA
     Dosage: 90 UG; BID; INHALATION
     Route: 055
     Dates: start: 20060101
  2. VYTORIN [Concomitant]
  3. ZANTAC [Concomitant]
  4. SYNTHROID [Concomitant]
  5. DICLOFENAC [Concomitant]
  6. NORMODYNE [Concomitant]
  7. VALSARTAN [Concomitant]
  8. UNIPHYL [Concomitant]
  9. SINGULAIR [Concomitant]
  10. LASIX [Concomitant]

REACTIONS (4)
  - ASTHENIA [None]
  - COUGH [None]
  - FEELING ABNORMAL [None]
  - INTERVERTEBRAL DISC PROTRUSION [None]
